FAERS Safety Report 20039193 (Version 1)
Quarter: 2021Q4

REPORT INFORMATION
  Report Type: Spontaneous
  Country: US (occurrence: US)
  Receive Date: 20211105
  Receipt Date: 20211105
  Transmission Date: 20220303
  Serious: No
  Sender: FDA-Public Use
  Company Number: US-TOLMAR, INC.-21US030714

PATIENT
  Age: 8 Year
  Sex: Female

DRUGS (1)
  1. FENSOLVI [Suspect]
     Active Substance: LEUPROLIDE ACETATE
     Indication: Precocious puberty
     Dosage: 45 MILLIGRAM
     Dates: start: 20210827

REACTIONS (2)
  - Blood luteinising hormone increased [Unknown]
  - Blood follicle stimulating hormone increased [Unknown]

NARRATIVE: CASE EVENT DATE: 20210929
